FAERS Safety Report 18105423 (Version 1)
Quarter: 2020Q3

REPORT INFORMATION
  Report Type: Spontaneous
  Country: VN (occurrence: VN)
  Receive Date: 20200804
  Receipt Date: 20200804
  Transmission Date: 20201103
  Serious: Yes (Other)
  Sender: FDA-Public Use
  Company Number: VN-LUPIN PHARMACEUTICALS INC.-2020-03876

PATIENT
  Age: 78 Year
  Sex: Female

DRUGS (4)
  1. CEFOPERAZONE + SULBACTAM [Suspect]
     Active Substance: CEFOPERAZONE SODIUM\SULBACTAM
     Indication: SERRATIA INFECTION
     Dosage: 6 GRAM, QD
     Route: 042
  2. AMIKACIN. [Suspect]
     Active Substance: AMIKACIN
     Indication: SERRATIA INFECTION
     Dosage: 15 MG/KG, QD
     Route: 065
  3. LEVOFLOXACIN. [Suspect]
     Active Substance: LEVOFLOXACIN
     Indication: SERRATIA INFECTION
     Dosage: 750 MILLIGRAM, QD
     Route: 065
  4. DORIPENEM. [Suspect]
     Active Substance: DORIPENEM
     Indication: SERRATIA INFECTION
     Dosage: 1.5 GRAM, QD
     Route: 042

REACTIONS (1)
  - Drug resistance [Unknown]
